FAERS Safety Report 8443529-1 (Version None)
Quarter: 2012Q2

REPORT INFORMATION
  Report Type: 
  Country: None (occurrence: None)
  Receive Date: 20120618
  Receipt Date: 20120613
  Transmission Date: 20120825
  Serious: No
  Sender: FDA-Public Use
  Company Number: US-PFIZER INC-2012142920

PATIENT
  Age: 28 Year
  Sex: Female
  Weight: 68.027 kg

DRUGS (3)
  1. IBUPROFEN (ADVIL) [Suspect]
     Indication: BACK PAIN
  2. IBUPROFEN (ADVIL) [Suspect]
     Indication: HEADACHE
     Dosage: 2 DF, EVERY 4 HRS
     Route: 048
     Dates: start: 20120101, end: 20120612
  3. IBUPROFEN (ADVIL) [Suspect]
     Indication: TOOTHACHE

REACTIONS (1)
  - DRUG INEFFECTIVE [None]
